FAERS Safety Report 7769989-7 (Version None)
Quarter: 2011Q3

REPORT INFORMATION
  Report Type: 
  Country: None (occurrence: None)
  Receive Date: 20110922
  Receipt Date: 20110413
  Transmission Date: 20111222
  Serious: No
  Sender: FDA-Public Use
  Company Number: US-ASTRAZENECA-2009UW12954

PATIENT
  Age: 200 Month
  Sex: Female
  Weight: 74.8 kg

DRUGS (6)
  1. MEDENT DM [Concomitant]
     Dates: start: 20070518
  2. SEROQUEL [Suspect]
     Indication: DEPRESSION
     Route: 048
     Dates: start: 20061101, end: 20080301
  3. SEROQUEL [Suspect]
     Route: 048
     Dates: start: 20061103
  4. ZYRTEC [Concomitant]
     Dates: start: 20070518
  5. LORATADINE [Concomitant]
     Dates: start: 20070313
  6. NORGESTIMATE AND ETHINYL ESTRADIOL [Concomitant]
     Dosage: 28 DAY
     Dates: start: 20070315

REACTIONS (4)
  - TYPE 2 DIABETES MELLITUS [None]
  - WEIGHT INCREASED [None]
  - OBESITY [None]
  - ABDOMINAL PAIN UPPER [None]
